FAERS Safety Report 14730125 (Version 4)
Quarter: 2020Q2

REPORT INFORMATION
  Report Type: Spontaneous
  Country: US (occurrence: US)
  Receive Date: 20180406
  Receipt Date: 20200630
  Transmission Date: 20200713
  Serious: Yes (Other)
  Sender: FDA-Public Use
  Company Number: US-BAYER-2018-066180

PATIENT
  Age: 66 Year
  Sex: Female
  Weight: 61 kg

DRUGS (3)
  1. CLARITIN [Suspect]
     Active Substance: LORATADINE
     Indication: IMMUNE SYSTEM DISORDER
     Dosage: 2-4 TABLETS, QD
     Route: 048
  2. CLARITIN [Suspect]
     Active Substance: LORATADINE
     Indication: IMMUNE SYSTEM DISORDER
     Dosage: 8-10 TABS PER DAY
     Route: 048
     Dates: start: 2018, end: 20200626
  3. HIDROCORTISON [Concomitant]
     Active Substance: HYDROCORTISONE
     Dosage: UNK

REACTIONS (6)
  - Suspected counterfeit product [None]
  - Product use issue [Unknown]
  - Drug dependence [Not Recovered/Not Resolved]
  - Therapeutic response unexpected [Not Recovered/Not Resolved]
  - Product use in unapproved indication [Not Recovered/Not Resolved]
  - Off label use [Unknown]
